FAERS Safety Report 12385092 (Version 1)
Quarter: 2016Q2

REPORT INFORMATION
  Report Type: Spontaneous
  Country: US (occurrence: US)
  Receive Date: 20160519
  Receipt Date: 20160519
  Transmission Date: 20160815
  Serious: Yes (Life-Threatening, Hospitalization, Other)
  Sender: FDA-Public Use
  Company Number: US-MDT-ADR-2016-00059

PATIENT
  Age: 70 Year
  Sex: Female

DRUGS (1)
  1. BACLOFEN. [Suspect]
     Active Substance: BACLOFEN
     Route: 037

REACTIONS (5)
  - Malaise [Recovering/Resolving]
  - Cerebrospinal fluid leakage [Recovering/Resolving]
  - Therapeutic response decreased [Recovering/Resolving]
  - Post procedural infection [Recovering/Resolving]
  - Meningitis staphylococcal [Recovering/Resolving]

NARRATIVE: CASE EVENT DATE: 2013
